FAERS Safety Report 10575106 (Version 4)
Quarter: 2014Q4

REPORT INFORMATION
  Report Type: Spontaneous
  Country: JP (occurrence: JP)
  Receive Date: 20141111
  Receipt Date: 20141231
  Transmission Date: 20150529
  Serious: Yes (Death, Life-Threatening, Other)
  Sender: FDA-Public Use
  Company Number: JP-009507513-1411JPN001547

PATIENT
  Age: 84 Year
  Sex: Male

DRUGS (9)
  1. CANCIDAS [Suspect]
     Active Substance: CASPOFUNGIN ACETATE
     Indication: SYSTEMIC CANDIDA
     Dosage: 70 MG, ONCE A DAY
     Route: 041
     Dates: start: 20140717, end: 20140717
  2. OMEPRAL [Concomitant]
     Active Substance: OMEPRAZOLE
     Indication: GASTRIC ULCER
     Dosage: 20 MG, BID
     Route: 051
     Dates: start: 20140715, end: 20140720
  3. SOLU-MEDROL [Concomitant]
     Active Substance: METHYLPREDNISOLONE SODIUM SUCCINATE
     Dosage: 40 MG, QD
     Route: 051
     Dates: start: 20140718, end: 20140720
  4. SODIUM CHLORIDE. [Concomitant]
     Active Substance: SODIUM CHLORIDE
     Indication: SEPSIS
     Dosage: 500 ML, BID
     Route: 051
     Dates: start: 20140715, end: 20140715
  5. MORPHINE HYDROCHLORIDE [Concomitant]
     Active Substance: MORPHINE HYDROCHLORIDE
     Indication: CANCER PAIN
     Dosage: 36 MG, QD
     Route: 051
     Dates: start: 20140719, end: 20140721
  6. SOLU-MEDROL [Concomitant]
     Active Substance: METHYLPREDNISOLONE SODIUM SUCCINATE
     Indication: INTERSTITIAL LUNG DISEASE
     Dosage: 1 G, QD
     Route: 051
     Dates: start: 20140715, end: 20140717
  7. ELNEOPA NO. 2 [Concomitant]
     Active Substance: UNSPECIFIED INGREDIENT
     Indication: GASTRIC CANCER
     Dosage: 1 L, QD
     Route: 051
     Dates: start: 20140716, end: 20140721
  8. CANCIDAS [Suspect]
     Active Substance: CASPOFUNGIN ACETATE
     Indication: SYSTEMIC CANDIDA
     Dosage: 50 MG, ONCE A DAY
     Route: 041
     Dates: start: 20140718, end: 20140720
  9. MEROPEN [Concomitant]
     Active Substance: MEROPENEM
     Indication: SEPSIS
     Dosage: 1 G, BID
     Route: 051
     Dates: start: 20140715, end: 20140720

REACTIONS (5)
  - Systemic candida [Fatal]
  - Blood pressure decreased [Fatal]
  - Cancer pain [Fatal]
  - Drug ineffective [Unknown]
  - Interstitial lung disease [Fatal]

NARRATIVE: CASE EVENT DATE: 201407
